FAERS Safety Report 21510950 (Version 1)
Quarter: 2022Q4

REPORT INFORMATION
  Report Type: Spontaneous
  Country: US (occurrence: None)
  Receive Date: 20221026
  Receipt Date: 20221026
  Transmission Date: 20230113
  Serious: Yes (Hospitalization)
  Sender: FDA-Public Use
  Company Number: None

PATIENT
  Age: 70 Year
  Sex: Male
  Weight: 117.07 kg

DRUGS (12)
  1. ABIRATERONE [Suspect]
     Active Substance: ABIRATERONE
     Indication: Prostate cancer
     Dosage: 1000MG DAILY ORAL?
     Route: 048
  2. HYDROCHLOROTHIAZIDE [Concomitant]
     Active Substance: HYDROCHLOROTHIAZIDE
  3. LISINOPRIL [Concomitant]
     Active Substance: LISINOPRIL
  4. LUPRON [Concomitant]
     Active Substance: LEUPROLIDE ACETATE
  5. MIRALAX [Concomitant]
     Active Substance: POLYETHYLENE GLYCOL 3350
  6. MS CONTIN [Concomitant]
     Active Substance: MORPHINE SULFATE
  7. MUPIROCIN [Concomitant]
     Active Substance: MUPIROCIN
  8. NARCAN [Concomitant]
     Active Substance: NALOXONE HYDROCHLORIDE
  9. NORCO [Concomitant]
     Active Substance: ACETAMINOPHEN\HYDROCODONE BITARTRATE
  10. OXYBUTYNIN [Concomitant]
     Active Substance: OXYBUTYNIN
  11. PREDNISONE [Concomitant]
     Active Substance: PREDNISONE
  12. SENOKOT [Concomitant]
     Active Substance: SENNOSIDES

REACTIONS (3)
  - Urine odour abnormal [None]
  - Abdominal pain upper [None]
  - Blood urine present [None]
